FAERS Safety Report 7576141-7 (Version None)
Quarter: 2011Q2

REPORT INFORMATION
  Report Type: 
  Country: None (occurrence: None)
  Receive Date: 20110623
  Receipt Date: 20110623
  Transmission Date: 20111010
  Serious: Yes (Other)
  Sender: FDA-Public Use
  Company Number: None

PATIENT
  Sex: Male

DRUGS (1)
  1. BOTOX [Suspect]
     Indication: HYPERHIDROSIS

REACTIONS (2)
  - HYPOAESTHESIA [None]
  - PARAESTHESIA [None]
